FAERS Safety Report 19364464 (Version 2)
Quarter: 2021Q2

REPORT INFORMATION
  Report Type: Spontaneous
  Country: US (occurrence: US)
  Receive Date: 20210603
  Receipt Date: 20210607
  Transmission Date: 20210717
  Serious: No
  Sender: FDA-Public Use
  Company Number: NVSC2021US118650

PATIENT
  Sex: Female

DRUGS (1)
  1. AMOXICILLIN, CLAVULANIC ACID [Suspect]
     Active Substance: AMOXICILLIN\CLAVULANIC ACID
     Indication: COELIAC DISEASE
     Dosage: UNK
     Route: 065
     Dates: start: 20210520, end: 20210522

REACTIONS (2)
  - Rash [Unknown]
  - Product use in unapproved indication [Unknown]
